FAERS Safety Report 13474456 (Version 2)
Quarter: 2017Q2

REPORT INFORMATION
  Report Type: Report from Study
  Country: FR (occurrence: FR)
  Receive Date: 20170424
  Receipt Date: 20170523
  Transmission Date: 20170830
  Serious: Yes (Death, Hospitalization, Other)
  Sender: FDA-Public Use
  Company Number: FR-PFIZER INC-2017167127

PATIENT
  Age: 69 Year
  Sex: Female

DRUGS (8)
  1. CACIT D3 [Concomitant]
     Active Substance: CALCIUM\CHOLECALCIFEROL
     Indication: PROPHYLAXIS
     Dosage: 500 MG, 2X/DAY
     Route: 048
     Dates: start: 20130711
  2. XGEVA [Concomitant]
     Active Substance: DENOSUMAB
     Indication: PROPHYLAXIS
     Dosage: 120 MG, MONTHLY
     Route: 058
     Dates: start: 20130711
  3. ORACILLINE /00001801/ [Concomitant]
     Active Substance: PENICILLIN V
     Indication: INFECTION PROPHYLAXIS
     Dosage: 1000000 IU, 2X/DAY
     Route: 048
     Dates: start: 20141124
  4. PALBOCICLIB [Suspect]
     Active Substance: PALBOCICLIB
     Dosage: 125 MG, DAILY
     Dates: start: 20160629, end: 20160707
  5. CORTANCYL [Concomitant]
     Active Substance: PREDNISONE
     Indication: INFLAMMATION
     Dosage: 20 MG
     Dates: start: 2016
  6. FULVESTRANT [Concomitant]
     Active Substance: FULVESTRANT
     Dosage: 500 MG
     Dates: start: 20160629, end: 20160707
  7. VITAMIN D [Concomitant]
     Active Substance: CHOLECALCIFEROL
     Indication: PROPHYLAXIS
     Dosage: UNK
     Dates: start: 20130711
  8. SOLUPRED /00016201/ [Concomitant]
     Active Substance: PREDNISOLONE
     Indication: INFLAMMATION
     Dosage: 60 MG, 1X/DAY
     Route: 048
     Dates: start: 20160629

REACTIONS (10)
  - Cholestasis [Not Recovered/Not Resolved]
  - Neutrophil count abnormal [Recovered/Resolved]
  - Hepatocellular injury [Not Recovered/Not Resolved]
  - Neoplasm progression [Fatal]
  - White blood cell count abnormal [Unknown]
  - Hyperkalaemia [Unknown]
  - Mucosal inflammation [Not Recovered/Not Resolved]
  - Blood calcium abnormal [Unknown]
  - Platelet count decreased [Recovered/Resolved]
  - Haemoglobin decreased [Unknown]

NARRATIVE: CASE EVENT DATE: 20160706
